FAERS Safety Report 5794585-0 (Version None)
Quarter: 2008Q2

REPORT INFORMATION
  Report Type: 
  Country: None (occurrence: None)
  Receive Date: 20080625
  Receipt Date: 20080613
  Transmission Date: 20081010
  Serious: Yes (Hospitalization)
  Sender: FDA-Public Use
  Company Number: 08-000901

PATIENT
  Age: 44 Year
  Sex: Female

DRUGS (3)
  1. TACLONEX [Suspect]
     Indication: PSORIASIS
     Dosage: QD, TOPICAL
     Route: 061
     Dates: end: 20080101
  2. ADALIMUMAB(ADALIMUMAB) [Suspect]
     Indication: PSORIASIS
     Dates: start: 20080303
  3. CLINDAMYCIN HCL [Concomitant]

REACTIONS (1)
  - ACUTE GENERALISED EXANTHEMATOUS PUSTULOSIS [None]
